FAERS Safety Report 7751048-0 (Version None)
Quarter: 2011Q3

REPORT INFORMATION
  Report Type: 
  Country: None (occurrence: None)
  Receive Date: 20110914
  Receipt Date: 20110902
  Transmission Date: 20111222
  Serious: Yes (Hospitalization)
  Sender: FDA-Public Use
  Company Number: US-BAYER-2011-011317

PATIENT
  Age: 17 Year
  Sex: Female
  Weight: 118 kg

DRUGS (4)
  1. YAZ [Suspect]
     Indication: PREMENSTRUAL SYNDROME
     Dosage: UNK
     Dates: start: 20080301, end: 20081004
  2. YAZ [Suspect]
  3. XOPENEX [Concomitant]
     Dosage: UNK
     Dates: start: 20070101
  4. ALBUTEROL [Concomitant]
     Dosage: UNK
     Dates: start: 20070101

REACTIONS (2)
  - PAIN [None]
  - PULMONARY EMBOLISM [None]
